FAERS Safety Report 24443151 (Version 1)
Quarter: 2024Q4

REPORT INFORMATION
  Report Type: Report from Study
  Country: CN (occurrence: CN)
  Receive Date: 20241016
  Receipt Date: 20241016
  Transmission Date: 20250115
  Serious: Yes (Other)
  Sender: ROCHE
  Company Number: CN-ROCHE-10000101905

PATIENT
  Age: 51 Year
  Sex: Male

DRUGS (1)
  1. COLUMVI [Suspect]
     Active Substance: GLOFITAMAB-GXBM
     Indication: Diffuse large B-cell lymphoma
     Dosage: SINGLE DOSE: 30MG/21 DAYS/TIME?10 MG (10 ML)/VIAL
     Route: 042
     Dates: start: 20240514

REACTIONS (1)
  - Intestinal perforation [Unknown]
